FAERS Safety Report 21314556 (Version 1)
Quarter: 2022Q3

REPORT INFORMATION
  Report Type: Spontaneous
  Country: KR (occurrence: KR)
  Receive Date: 20220909
  Receipt Date: 20220909
  Transmission Date: 20221027
  Serious: Yes (Death, Other)
  Sender: FDA-Public Use
  Company Number: KR-BRISTOL-MYERS SQUIBB COMPANY-2022-103209

PATIENT
  Age: 62 Year
  Sex: Female

DRUGS (2)
  1. OPDIVO [Suspect]
     Active Substance: NIVOLUMAB
     Indication: Product used for unknown indication
     Dosage: 100/10 MILLIGRAM PER MILLILITRE
     Route: 065
  2. OPDIVO [Suspect]
     Active Substance: NIVOLUMAB
     Route: 065

REACTIONS (1)
  - Death [Fatal]
